FAERS Safety Report 9156148 (Version 3)
Quarter: 2013Q2

REPORT INFORMATION
  Report Type: Spontaneous
  Country: JP (occurrence: JP)
  Receive Date: 20130311
  Receipt Date: 20130404
  Transmission Date: 20140414
  Serious: Yes (Life-Threatening, Other)
  Sender: FDA-Public Use
  Company Number: JP-OTSUKA-JP-2013-10594

PATIENT
  Age: 50 Year
  Sex: Male

DRUGS (11)
  1. SAMSCA [Suspect]
     Indication: CONGESTIVE CARDIOMYOPATHY
     Dosage: 3.75 MG MILLIGRAM(S), DAILY DOSE
     Route: 048
     Dates: end: 20130206
  2. SAMSCA [Suspect]
     Dosage: 7.5 MG MILLIGRAM(S), DAILY DOSE
     Route: 048
     Dates: start: 20130207, end: 20130210
  3. LASIX [Suspect]
     Dosage: 20 MG MILLIGRAM(S), DAILY DOSE
     Route: 042
     Dates: start: 20130207, end: 20130210
  4. INOVAN [Suspect]
     Dosage: UNK
     Route: 042
     Dates: start: 20130210, end: 20130210
  5. DOBUTAMINE [Suspect]
     Dosage: 10 ML MILLILITRE(S), DAILY DOSE
     Route: 042
     Dates: start: 20130210, end: 20130210
  6. TANATRIL [Suspect]
     Dosage: 5 MG MILLIGRAM(S), DAILY DOSE
     Route: 048
     Dates: end: 20130210
  7. LASIX [Suspect]
     Dosage: 40 MG MILLIGRAM(S), DAILY DOSE
     Route: 048
     Dates: end: 20130210
  8. ARTIST [Suspect]
     Dosage: 2.5 MG MILLIGRAM(S), DAILY DOSE
     Route: 048
     Dates: end: 20130210
  9. ALDACTONE A [Suspect]
     Dosage: 25 MG MILLIGRAM(S), DAILY DOSE
     Route: 048
     Dates: end: 20130210
  10. WARFARIN [Suspect]
     Dosage: UNK
     Route: 048
     Dates: end: 20130210
  11. HEPARIN [Concomitant]
     Dosage: UNK
     Route: 065
     Dates: start: 20130210

REACTIONS (4)
  - Histiocytosis haematophagic [Recovering/Resolving]
  - Cardiac failure [Recovered/Resolved]
  - Eating disorder symptom [Recovered/Resolved]
  - Nausea [Recovered/Resolved]
